FAERS Safety Report 5542780-8 (Version None)
Quarter: 2007Q4

REPORT INFORMATION
  Report Type: 
  Country: None (occurrence: None)
  Receive Date: 20071210
  Receipt Date: 20071128
  Transmission Date: 20080405
  Serious: Yes (Hospitalization, Other)
  Sender: FDA-Public Use
  Company Number: US-PFIZER INC-2007073074

PATIENT
  Sex: Male
  Weight: 76.818 kg

DRUGS (18)
  1. LIPITOR [Suspect]
     Indication: BLOOD CHOLESTEROL INCREASED
     Route: 048
  2. RAPAMUNE [Concomitant]
  3. CELLCEPT [Concomitant]
     Route: 048
  4. CYMBALTA [Concomitant]
  5. COREG [Concomitant]
     Route: 048
  6. AMITRIPTLINE HCL [Concomitant]
  7. KEPPRA [Concomitant]
  8. LASIX [Concomitant]
     Route: 048
  9. POTASSIUM CHLORIDE [Concomitant]
  10. LANTUS [Concomitant]
     Dosage: TEXT:13 UNITS
     Route: 058
  11. NOVOLOG [Concomitant]
  12. NEURONTIN [Concomitant]
     Route: 048
  13. ZOLOFT [Concomitant]
     Route: 048
  14. RESTORIL [Concomitant]
     Route: 048
  15. ACETYLSALICYLIC ACID SRT [Concomitant]
     Route: 048
  16. PERCOCET [Concomitant]
     Dosage: TEXT:5/325MG 1-2 TABS EVERY 4 HOURS AS NEEDED
     Route: 048
  17. IMDUR [Concomitant]
     Route: 048
  18. PLAVIX [Concomitant]
     Route: 048

REACTIONS (7)
  - ABASIA [None]
  - BLOOD BILIRUBIN INCREASED [None]
  - BLOOD CREATININE INCREASED [None]
  - DYSPNOEA [None]
  - FALL [None]
  - MUSCLE DISORDER [None]
  - WEIGHT INCREASED [None]
